FAERS Safety Report 23925922 (Version 1)
Quarter: 2024Q2

REPORT INFORMATION
  Report Type: Spontaneous
  Country: US (occurrence: None)
  Receive Date: 20240531
  Receipt Date: 20240531
  Transmission Date: 20240715
  Serious: Yes (Hospitalization)
  Sender: FDA-Public Use
  Company Number: None

PATIENT
  Age: 57 Year
  Sex: Female

DRUGS (4)
  1. PANZYGA [Suspect]
     Active Substance: HUMAN IMMUNOGLOBULIN G
     Indication: Myasthenia gravis
     Dosage: 30GM EVERY 2 WEEKS INTRAVENOUS
     Route: 042
     Dates: start: 20210923
  2. PANZYGA [Suspect]
     Active Substance: HUMAN IMMUNOGLOBULIN G
     Indication: Myasthenia gravis
     Dosage: 20GM EVERY 2 WEEKS INTRAVENOUS
     Route: 042
     Dates: start: 20210923
  3. EPINEPHRINE [Concomitant]
  4. DEXTRISE SIKB [Concomitant]

REACTIONS (3)
  - Myasthenia gravis [None]
  - Dermatochalasis [None]
  - Dyspnoea [None]

NARRATIVE: CASE EVENT DATE: 20240525
